FAERS Safety Report 8597102-5 (Version None)
Quarter: 2012Q3

REPORT INFORMATION
  Report Type: 
  Country: None (occurrence: None)
  Receive Date: 20120816
  Receipt Date: 20120807
  Transmission Date: 20120928
  Serious: No
  Sender: FDA-Public Use
  Company Number: US-BIOGENIDEC-2011BI032804

PATIENT
  Age: 53 Year
  Sex: Female

DRUGS (1)
  1. TYSABRI [Suspect]
     Indication: MULTIPLE SCLEROSIS
     Route: 042
     Dates: start: 20110621, end: 20120628

REACTIONS (6)
  - MUSCLE TIGHTNESS [None]
  - KERATOSIS FOLLICULAR [None]
  - INSOMNIA [None]
  - RESTLESSNESS [None]
  - INFUSION SITE PAIN [None]
  - CONTUSION [None]
